FAERS Safety Report 7552632-X (Version None)
Quarter: 2011Q2

REPORT INFORMATION
  Report Type: 
  Country: None (occurrence: None)
  Receive Date: 20110616
  Receipt Date: 20110606
  Transmission Date: 20111010
  Serious: Yes (Death, Life-Threatening, Hospitalization)
  Sender: FDA-Public Use
  Company Number: CA-UCBSA-027232

PATIENT
  Sex: Male
  Weight: 106 kg

DRUGS (2)
  1. CIMZIA [Suspect]
     Indication: RHEUMATOID ARTHRITIS
     Dosage: REALISTIC TRIAL
     Dates: start: 20090601
  2. CIMZIA [Suspect]
     Route: 058
     Dates: start: 20100108, end: 20101101

REACTIONS (9)
  - NEOPLASM [None]
  - CEREBROVASCULAR ACCIDENT [None]
  - VENOUS INSUFFICIENCY [None]
  - BACK PAIN [None]
  - METASTASES TO CENTRAL NERVOUS SYSTEM [None]
  - LYMPH NODE CANCER METASTATIC [None]
  - CELLULITIS [None]
  - DEATH [None]
  - METASTASES TO RETROPERITONEUM [None]
